FAERS Safety Report 13281941 (Version 1)
Quarter: 2017Q1

REPORT INFORMATION
  Report Type: Spontaneous
  Country: US (occurrence: US)
  Receive Date: 20170228
  Receipt Date: 20170228
  Transmission Date: 20170428
  Serious: Yes (Death)
  Sender: FDA-Public Use
  Company Number: None

PATIENT
  Age: 79 Year
  Sex: Female

DRUGS (1)
  1. IBRANCE [Suspect]
     Active Substance: PALBOCICLIB
     Indication: BREAST CANCER
     Dosage: 100MG DAILY FOR 21 DAYS ON, 7 DAYS OFF PO
     Route: 048
     Dates: start: 201607, end: 201702

REACTIONS (3)
  - Metastases to bladder [None]
  - Metastases to kidney [None]
  - Metastases to urinary tract [None]

NARRATIVE: CASE EVENT DATE: 20170208
